FAERS Safety Report 25177154 (Version 1)
Quarter: 2025Q2

REPORT INFORMATION
  Report Type: Other
  Country: BG (occurrence: BG)
  Receive Date: 20250409
  Receipt Date: 20250409
  Transmission Date: 20250716
  Serious: Yes (Hospitalization)
  Sender: ANI
  Company Number: BG-ANIPHARMA-022268

PATIENT
  Age: 64 Year
  Sex: Female

DRUGS (12)
  1. CHLORTHALIDONE [Suspect]
     Active Substance: CHLORTHALIDONE
     Indication: Hypertensive heart disease
     Dates: start: 202304
  2. CIPROFLOXACIN [Suspect]
     Active Substance: CIPROFLOXACIN
     Indication: Product used for unknown indication
  3. VALSARTAN [Concomitant]
     Active Substance: VALSARTAN
     Indication: Hypertensive heart disease
     Dates: start: 202304
  4. BISOPROLOL [Concomitant]
     Active Substance: BISOPROLOL
     Indication: Hypertensive heart disease
     Dates: start: 202304
  5. SPIRONOLACTONE [Concomitant]
     Active Substance: SPIRONOLACTONE
     Indication: Hypertensive heart disease
     Dates: start: 202304
  6. ROSUVASTATIN [Concomitant]
     Active Substance: ROSUVASTATIN
     Indication: Ischaemic stroke
     Dates: start: 202304
  7. CLOPIDOGREL [Concomitant]
     Active Substance: CLOPIDOGREL BISULFATE
     Indication: Product used for unknown indication
     Dates: start: 202304
  8. BETAHISTINE [Concomitant]
     Active Substance: BETAHISTINE
     Indication: Product used for unknown indication
     Dates: start: 202304
  9. MOXONIDINE [Concomitant]
     Active Substance: MOXONIDINE
     Indication: Hypertensive heart disease
  10. SULFAMETHOXAZOLE\TRIMETHOPRIM [Concomitant]
     Active Substance: SULFAMETHOXAZOLE\TRIMETHOPRIM
     Indication: Urinary tract infection
  11. SULFAMETHOXAZOLE\TRIMETHOPRIM [Concomitant]
     Active Substance: SULFAMETHOXAZOLE\TRIMETHOPRIM
     Indication: Escherichia infection
  12. SULFAMETHOXAZOLE\TRIMETHOPRIM [Concomitant]
     Active Substance: SULFAMETHOXAZOLE\TRIMETHOPRIM
     Indication: Periodontitis

REACTIONS (2)
  - Lichen planopilaris [Recovering/Resolving]
  - Hypersensitivity [Unknown]
